FAERS Safety Report 25040727 (Version 1)
Quarter: 2025Q1

REPORT INFORMATION
  Report Type: Report from Study
  Country: US (occurrence: US)
  Receive Date: 20250305
  Receipt Date: 20250305
  Transmission Date: 20250408
  Serious: Yes (Hospitalization)
  Sender: GILEAD
  Company Number: US-GILEAD-2025-0705949

PATIENT
  Age: 26 Year
  Sex: Male

DRUGS (18)
  1. AZTREONAM LYSINE [Suspect]
     Active Substance: AZTREONAM LYSINE
     Indication: Cystic fibrosis
     Dosage: 75MG: INHALE 1 VIAL (75 MG) VIA NEBULIZER THREE TIMES DAILY - CYCLE 28 DAYS ON 28 DAYS OFF
     Route: 055
     Dates: start: 20180405
  2. MONTELUKAST [Concomitant]
     Active Substance: MONTELUKAST
  3. PULMOZYME [Concomitant]
     Active Substance: DORNASE ALFA
  4. LEVALBUTEROL [Concomitant]
     Active Substance: LEVALBUTEROL
  5. SODIUM CHLORIDE [Concomitant]
     Active Substance: SODIUM CHLORIDE
  6. IPRATROPIUM [Concomitant]
     Active Substance: IPRATROPIUM
  7. TOBRAMYCIN [Concomitant]
     Active Substance: TOBRAMYCIN
  8. FLUOCINOLONE ACETONIDE [Concomitant]
     Active Substance: FLUOCINOLONE ACETONIDE
  9. EPINEPHRINE [Concomitant]
     Active Substance: EPINEPHRINE
  10. TRIAMCINOLON COMPO [Concomitant]
  11. SYMBICORT [Concomitant]
     Active Substance: BUDESONIDE\FORMOTEROL FUMARATE DIHYDRATE
  12. METHOCARBAMOL [Concomitant]
     Active Substance: METHOCARBAMOL
  13. APAP/CODEINE PHOSPHATE [Concomitant]
  14. LANSOPRAZOLE [Concomitant]
     Active Substance: LANSOPRAZOLE
  15. AZELASTINE [Concomitant]
     Active Substance: AZELASTINE
  16. IBUPROFEN [Concomitant]
     Active Substance: IBUPROFEN
  17. AZITHROMYCIN [Concomitant]
     Active Substance: AZITHROMYCIN
  18. DULERA [Concomitant]
     Active Substance: FORMOTEROL FUMARATE DIHYDRATE\MOMETASONE FUROATE

REACTIONS (1)
  - Fall [Unknown]
